FAERS Safety Report 17856955 (Version 1)
Quarter: 2020Q2

REPORT INFORMATION
  Report Type: Report from Study
  Country: None (occurrence: US)
  Receive Date: 20200603
  Receipt Date: 20200603
  Transmission Date: 20200714
  Serious: Yes (Other)
  Sender: FDA-Public Use
  Company Number: US-ABBVIE-20K-163-3427887-00

PATIENT
  Sex: Female

DRUGS (1)
  1. IMBRUVICA [Suspect]
     Active Substance: IBRUTINIB
     Indication: CHRONIC LYMPHOCYTIC LEUKAEMIA
     Route: 048
     Dates: start: 201409

REACTIONS (7)
  - Decreased appetite [Recovered/Resolved]
  - Sinus disorder [Unknown]
  - Abnormal faeces [Recovered/Resolved]
  - Myocardial infarction [Recovered/Resolved]
  - Neoplasm [Unknown]
  - Diarrhoea [Recovered/Resolved]
  - Onychoclasis [Unknown]
